FAERS Safety Report 10580671 (Version 1)
Quarter: 2014Q4

REPORT INFORMATION
  Report Type: Spontaneous
  Country: GB (occurrence: GB)
  Receive Date: 20141113
  Receipt Date: 20141113
  Transmission Date: 20150529
  Serious: Yes (Disabling, Other)
  Sender: FDA-Public Use
  Company Number: GB-009507513-1411GBR004903

PATIENT
  Age: 3 Decade
  Sex: Male
  Weight: 74 kg

DRUGS (2)
  1. ESCITALOPRAM [Concomitant]
     Active Substance: ESCITALOPRAM OXALATE
  2. PROPECIA [Suspect]
     Active Substance: FINASTERIDE
     Indication: ANDROGENETIC ALOPECIA
     Dosage: 1 MG, QD
     Route: 048
     Dates: start: 20080301, end: 20140906

REACTIONS (9)
  - Fatigue [Unknown]
  - Disturbance in attention [Unknown]
  - Anxiety [Unknown]
  - Cataplexy [Unknown]
  - Memory impairment [Unknown]
  - Confusional state [Unknown]
  - Somnolence [Unknown]
  - Narcolepsy [Unknown]
  - Genital disorder male [Recovering/Resolving]
